FAERS Safety Report 9182363 (Version 1)
Quarter: 2012Q4

REPORT INFORMATION
  Report Type: 
  Country: US (occurrence: US)
  Receive Date: 20121030
  Receipt Date: 20121030
  Transmission Date: 20130627
  Serious: No
  Sender: FDA-Public Use
  Company Number: US-VERTEX PHARMACEUTICAL INC.-2012-023689

PATIENT
  Age: 69 None
  Sex: Male
  Weight: 96 kg

DRUGS (3)
  1. VX-950 [Suspect]
     Indication: HEPATITIS C
     Dosage: 750 mg, tid
     Route: 048
  2. RIBAPAK [Concomitant]
     Indication: HEPATITIS C
     Dosage: 600 mg, UNK
  3. PEGASYS [Concomitant]
     Indication: HEPATITIS C
     Dosage: 180 �g, UNK

REACTIONS (5)
  - Insomnia [Unknown]
  - Weight decreased [Unknown]
  - Pain in extremity [Unknown]
  - Fatigue [Unknown]
  - Rash [Unknown]
